FAERS Safety Report 4520508-8 (Version None)
Quarter: 2004Q4

REPORT INFORMATION
  Report Type: 
  Country: None (occurrence: None)
  Receive Date: 20041203
  Receipt Date: 20041123
  Transmission Date: 20050328
  Serious: Yes (Hospitalization, Other)
  Sender: FDA-Public Use
  Company Number: 2004009355

PATIENT
  Sex: Male
  Weight: 89.3586 kg

DRUGS (12)
  1. NEURONTIN [Suspect]
     Indication: BIPOLAR DISORDER
     Dosage: 1800 MG (TID), ORAL
     Route: 048
     Dates: start: 19980301
  2. NEURONTIN [Suspect]
     Indication: ILL-DEFINED DISORDER
     Dosage: 1800 MG (TID), ORAL
     Route: 048
     Dates: start: 19980301
  3. LIPITOR [Suspect]
     Indication: BLOOD CHOLESTEROL
     Dosage: 20 MG (DAILY), ORAL
     Route: 048
  4. LITHIUM (LITHIUM) (LITHIUM) [Suspect]
     Indication: ILL-DEFINED DISORDER
  5. NAPROXEN [Suspect]
     Indication: PAIN IN JAW
  6. ROFECOXIB [Suspect]
     Indication: FACIAL PAIN
  7. ROFECOXIB [Suspect]
     Indication: PAIN IN JAW
  8. AMOXICILLIN [Suspect]
     Indication: FEELING COLD
     Dosage: 1000 MG (BID), ORAL
     Route: 048
     Dates: start: 20040101
  9. ALL OTHER THERAPEUTIC PRODUCTS (ALL OTHER THERAPEUTIC PRODUCTS) [Concomitant]
  10. LEVOTHYROXINE SODIUM [Concomitant]
  11. VITAMINS (VITAMINS) [Concomitant]
  12. DILTIAZEM HYDROCHLORIDE [Concomitant]

REACTIONS (18)
  - ABDOMINAL PAIN [None]
  - CARDIAC DISORDER [None]
  - CHEST PAIN [None]
  - CHILLS [None]
  - CONDITION AGGRAVATED [None]
  - DRUG TOLERANCE DECREASED [None]
  - ERECTILE DYSFUNCTION [None]
  - FACIAL PAIN [None]
  - FEELING COLD [None]
  - GENERAL PHYSICAL HEALTH DETERIORATION [None]
  - GINGIVAL PAIN [None]
  - GLOSSODYNIA [None]
  - NECK PAIN [None]
  - OESOPHAGEAL SPASM [None]
  - PAIN IN JAW [None]
  - SLEEP DISORDER [None]
  - TOOTH ABSCESS [None]
  - TREMOR [None]
